FAERS Safety Report 14149927 (Version 1)
Quarter: 2017Q4

REPORT INFORMATION
  Report Type: Report from Study
  Country: US (occurrence: US)
  Receive Date: 20171101
  Receipt Date: 20171101
  Transmission Date: 20180321
  Serious: Yes (Hospitalization, Other)
  Sender: FDA-Public Use
  Company Number: US-GILEAD-2017-0290010

PATIENT
  Age: 62 Year
  Sex: Male

DRUGS (7)
  1. SILDENAFIL. [Concomitant]
     Active Substance: SILDENAFIL
  2. AMBRISENTAN [Suspect]
     Active Substance: AMBRISENTAN
     Indication: CONNECTIVE TISSUE DISORDER
     Dosage: 10 MG, QD
     Route: 048
     Dates: start: 201612
  3. AMBRISENTAN [Suspect]
     Active Substance: AMBRISENTAN
     Indication: PULMONARY HYPERTENSION
     Dosage: 5 MG, QD
     Route: 065
     Dates: start: 201611, end: 201612
  4. METOLAZONE. [Concomitant]
     Active Substance: METOLAZONE
  5. KLOR-CON [Concomitant]
     Active Substance: POTASSIUM CHLORIDE
  6. AMBRISENTAN [Suspect]
     Active Substance: AMBRISENTAN
     Indication: HEART DISEASE CONGENITAL
  7. TRAMADOL. [Concomitant]
     Active Substance: TRAMADOL

REACTIONS (10)
  - Haemoglobin decreased [Unknown]
  - Scrotal swelling [Unknown]
  - Chest discomfort [Unknown]
  - Gastric ulcer [Unknown]
  - Dyspnoea exertional [Unknown]
  - Fatigue [Unknown]
  - Peripheral swelling [Unknown]
  - Dyspnoea [Unknown]
  - Pyrexia [Unknown]
  - Orthopnoea [Unknown]
